FAERS Safety Report 13693784 (Version 1)
Quarter: 2017Q2

REPORT INFORMATION
  Report Type: Spontaneous
  Country: US (occurrence: US)
  Receive Date: 20170627
  Receipt Date: 20170627
  Transmission Date: 20170830
  Serious: Yes (Hospitalization, Other)
  Sender: FDA-Public Use
  Company Number: US-G+W LABS-GW2017US000184

PATIENT

DRUGS (1)
  1. ACETAMINOPHEN. [Suspect]
     Active Substance: ACETAMINOPHEN
     Indication: TOOTHACHE
     Dosage: 12.5 G, UNK
     Route: 065

REACTIONS (6)
  - Premature separation of placenta [Recovered/Resolved]
  - Accidental overdose [Unknown]
  - Hepatocellular injury [Unknown]
  - Hepatic enzyme increased [Unknown]
  - Foetal exposure during pregnancy [Recovered/Resolved]
  - Coagulopathy [Unknown]
